FAERS Safety Report 13713257 (Version 1)
Quarter: 2017Q3

REPORT INFORMATION
  Report Type: Spontaneous
  Country: US (occurrence: US)
  Receive Date: 20170704
  Receipt Date: 20170704
  Transmission Date: 20171127
  Serious: No
  Sender: FDA-Public Use
  Company Number: US-TEVA-763131ACC

PATIENT
  Age: 70 Year
  Sex: Female

DRUGS (1)
  1. PREDNISONE. [Suspect]
     Active Substance: PREDNISONE
     Route: 065

REACTIONS (4)
  - Headache [Unknown]
  - Food craving [Unknown]
  - Hot flush [Unknown]
  - Gastrooesophageal reflux disease [Unknown]
